FAERS Safety Report 6547306-8 (Version None)
Quarter: 2010Q1

REPORT INFORMATION
  Report Type: 
  Country: None (occurrence: None)
  Receive Date: 20100122
  Receipt Date: 20100114
  Transmission Date: 20100710
  Serious: Yes (Hospitalization)
  Sender: FDA-Public Use
  Company Number: CH-PFIZER INC-2010005349

PATIENT
  Age: 44 Year
  Sex: Male
  Weight: 83 kg

DRUGS (5)
  1. SORTIS [Suspect]
     Indication: HYPERLIPIDAEMIA
     Dosage: 80 MG, 1X/DAY
     Dates: start: 20091109, end: 20091130
  2. METFORMIN HYDROCHLORIDE [Suspect]
     Indication: TYPE 1 DIABETES MELLITUS
     Dosage: 1000 MG, 3X/DAY
     Route: 048
     Dates: start: 20091119, end: 20091130
  3. DAFALGAN [Suspect]
     Dosage: 1 G, 2X/DAY
     Route: 048
     Dates: start: 20091127, end: 20091130
  4. LANTUS [Concomitant]
     Indication: TYPE 1 DIABETES MELLITUS
     Dosage: 40 IU, UNK
     Route: 058
     Dates: start: 20091106, end: 20091130
  5. NOVORAPID [Concomitant]
     Indication: TYPE 1 DIABETES MELLITUS
     Dosage: 8 IU, UNK
     Route: 058
     Dates: start: 20091112, end: 20091130

REACTIONS (3)
  - HEPATITIS [None]
  - JAUNDICE HEPATOCELLULAR [None]
  - NAUSEA [None]
